FAERS Safety Report 14794144 (Version 4)
Quarter: 2019Q1

REPORT INFORMATION
  Report Type: Spontaneous
  Country: US (occurrence: US)
  Receive Date: 20180423
  Receipt Date: 20190116
  Transmission Date: 20190417
  Serious: Yes (Hospitalization, Other)
  Sender: FDA-Public Use
  Company Number: US-PURDUE-USA-2018-0143346

PATIENT
  Age: 69 Year
  Sex: Female
  Weight: 43.9 kg

DRUGS (5)
  1. LACTULOSE. [Concomitant]
     Active Substance: LACTULOSE
     Indication: CONSTIPATION
     Dosage: 20 MCG, DAILY
     Route: 048
     Dates: start: 20180321
  2. VENTOLIN [Concomitant]
     Active Substance: ALBUTEROL SULFATE
     Indication: PRODUCT USED FOR UNKNOWN INDICATION
     Dosage: UNK
     Route: 065
     Dates: start: 20170111
  3. OXYCODONE HYDROCHLORIDE (SIMILAR TO NDA 22-272) [Suspect]
     Active Substance: OXYCODONE HYDROCHLORIDE
     Indication: BACK PAIN
     Dosage: 10 MG, DAILY
     Route: 048
     Dates: start: 20170809
  4. TOPOTECAN [Suspect]
     Active Substance: TOPOTECAN HYDROCHLORIDE
     Indication: SMALL CELL LUNG CANCER
     Dosage: 1.25 MCG/M2, DAILY
     Route: 042
     Dates: start: 20180108, end: 20180308
  5. METFORMIN [Concomitant]
     Active Substance: METFORMIN HYDROCHLORIDE
     Indication: PRODUCT USED FOR UNKNOWN INDICATION
     Route: 048

REACTIONS (5)
  - Urosepsis [Unknown]
  - Abdominal pain [Unknown]
  - Pyelonephritis [Recovered/Resolved with Sequelae]
  - Constipation [Recovered/Resolved]
  - Flank pain [Unknown]

NARRATIVE: CASE EVENT DATE: 201804
